FAERS Safety Report 5820226-X (Version None)
Quarter: 2008Q3

REPORT INFORMATION
  Report Type: 
  Country: None (occurrence: None)
  Receive Date: 20080724
  Receipt Date: 20080723
  Transmission Date: 20090109
  Serious: Yes (Hospitalization)
  Sender: FDA-Public Use
  Company Number: PHEH1999US02242

PATIENT
  Sex: Male
  Weight: 58 kg

DRUGS (2)
  1. RAD 666 RAD+ [Suspect]
     Dosage: 0.75 MG, BID
     Route: 048
     Dates: start: 19981201
  2. NEORAL [Suspect]
     Route: 048
     Dates: start: 19990225

REACTIONS (1)
  - NEPHROPATHY TOXIC [None]
